FAERS Safety Report 6030095-3 (Version None)
Quarter: 2009Q1

REPORT INFORMATION
  Report Type: 
  Country: None (occurrence: None)
  Receive Date: 20090107
  Receipt Date: 20080915
  Transmission Date: 20090719
  Serious: No
  Sender: FDA-Public Use
  Company Number: US-BAYER-200813752BCC

PATIENT
  Age: 68 Year
  Sex: Male
  Weight: 86 kg

DRUGS (3)
  1. ALEVE (CAPLET) [Suspect]
     Indication: MUSCULOSKELETAL PAIN
     Dosage: TOTAL DAILY DOSE: 220 MG  UNIT DOSE: 220 MG
     Dates: start: 20080911
  2. VYTORIN [Concomitant]
  3. METFORMIN HCL [Concomitant]

REACTIONS (2)
  - HEMICEPHALALGIA [None]
  - HYPERTENSION [None]
